FAERS Safety Report 13501246 (Version 2)
Quarter: 2017Q4

REPORT INFORMATION
  Report Type: Spontaneous
  Country: US (occurrence: US)
  Receive Date: 20170501
  Receipt Date: 20171027
  Transmission Date: 20180320
  Serious: No
  Sender: FDA-Public Use
  Company Number: US-ROCHE-1893943

PATIENT
  Sex: Male

DRUGS (1)
  1. ESBRIET [Suspect]
     Active Substance: PIRFENIDONE
     Indication: IDIOPATHIC PULMONARY FIBROSIS
     Dosage: 2401 MG EVERY DAY ;ONGOING: YES
     Route: 048

REACTIONS (5)
  - Decreased appetite [Unknown]
  - Fatigue [Unknown]
  - Weight decreased [Unknown]
  - Nausea [Unknown]
  - Malaise [Unknown]
